FAERS Safety Report 8359234-6 (Version None)
Quarter: 2012Q2

REPORT INFORMATION
  Report Type: 
  Country: None (occurrence: None)
  Receive Date: 20120514
  Receipt Date: 20120514
  Transmission Date: 20120825
  Serious: No
  Sender: FDA-Public Use
  Company Number: None

PATIENT
  Age: 62 Year
  Sex: Female
  Weight: 81.6475 kg

DRUGS (1)
  1. ZETIA [Suspect]
     Indication: BLOOD CHOLESTEROL INCREASED
     Dosage: 1 DAILY
     Dates: start: 20120426, end: 20120507

REACTIONS (8)
  - MYALGIA [None]
  - ARTHRALGIA [None]
  - EAR DISCOMFORT [None]
  - EAR PAIN [None]
  - COUGH [None]
  - BONE PAIN [None]
  - SINUS CONGESTION [None]
  - HEADACHE [None]
